FAERS Safety Report 9373978 (Version 1)
Quarter: 2013Q2

REPORT INFORMATION
  Report Type: Spontaneous
  Country: US (occurrence: None)
  Receive Date: 20130627
  Receipt Date: 20130627
  Transmission Date: 20140414
  Serious: No
  Sender: FDA-Public Use
  Company Number: None

PATIENT
  Age: 77 Year
  Sex: Male
  Weight: 98.2 kg

DRUGS (1)
  1. ATORVASTATIN 10 MG WATSON [Suspect]
     Indication: HYPERLIPIDAEMIA
     Route: 048
     Dates: start: 20130306, end: 20130531

REACTIONS (2)
  - Stomatitis [None]
  - Myalgia [None]
